FAERS Safety Report 15624396 (Version 1)
Quarter: 2018Q4

REPORT INFORMATION
  Report Type: Report from Study
  Country: CN (occurrence: CN)
  Receive Date: 20181116
  Receipt Date: 20181116
  Transmission Date: 20190205
  Serious: Yes (Other)
  Sender: FDA-Public Use
  Company Number: CN-ROCHE-2212847

PATIENT
  Sex: Female

DRUGS (4)
  1. GEMCITABINE [Suspect]
     Active Substance: GEMCITABINE\GEMCITABINE HYDROCHLORIDE
     Indication: BREAST CANCER METASTATIC
     Dosage: 800-1000 MG/M2 ON DAY 1 AND DAY 8, WITH 21 DAY FOR 1 CYCLE
     Route: 041
  2. CAPECITABINE. [Suspect]
     Active Substance: CAPECITABINE
     Indication: BREAST CANCER METASTATIC
     Dosage: 1500-2000MG/M2/DAY FROM DAY 1 TO DAY 14, WITH 21 DAY FOR 1 CYCLE
     Route: 048
  3. CISPLATIN. [Suspect]
     Active Substance: CISPLATIN
     Indication: BREAST CANCER METASTATIC
     Dosage: 25-30 MG/M2, DAY 1-DAY 3, WITH 21 DAY FOR 1 CYCLE
     Route: 041
  4. IFOSFAMIDE. [Suspect]
     Active Substance: IFOSFAMIDE
     Indication: BREAST CANCER METASTATIC
     Dosage: 1200-1500MG/M2, DAY 2-DAY 4, WITH 21 DAY FOR 1 CYCLE
     Route: 041

REACTIONS (12)
  - Rash [Unknown]
  - Neutrophil count decreased [Unknown]
  - Thrombocytopenia [Unknown]
  - Nausea [Unknown]
  - Aspartate aminotransferase increased [Unknown]
  - Palmar-plantar erythrodysaesthesia syndrome [Unknown]
  - Vomiting [Unknown]
  - Neurotoxicity [Unknown]
  - Diarrhoea [Unknown]
  - Alanine aminotransferase increased [Unknown]
  - Bone marrow failure [Unknown]
  - Anaemia [Unknown]
